FAERS Safety Report 7274351-X (Version None)
Quarter: 2011Q1

REPORT INFORMATION
  Report Type: 
  Country: None (occurrence: None)
  Receive Date: 20110131
  Receipt Date: 20110131
  Transmission Date: 20110831
  Serious: Yes (Death)
  Sender: FDA-Public Use
  Company Number: None

PATIENT
  Age: 70 Year
  Sex: Male

DRUGS (9)
  1. ALBUTEROL [Concomitant]
  2. ZOCOR [Concomitant]
  3. REVLIMID [Suspect]
     Indication: CHRONIC LYMPHOCYTIC LEUKAEMIA
     Dosage: 5MG DAILY ORALLY
     Route: 048
     Dates: start: 20110107, end: 20110111
  4. ACYCLOVIR [Concomitant]
  5. FLUCONAZOLE [Concomitant]
  6. AVELOX [Concomitant]
  7. ASPIRIN [Concomitant]
  8. LOSARTAN POTASSIUM [Concomitant]
  9. ANLODIPINE [Concomitant]

REACTIONS (3)
  - PNEUMONIA [None]
  - DYSPNOEA [None]
  - FATIGUE [None]
